FAERS Safety Report 8621361-3 (Version None)
Quarter: 2012Q3

REPORT INFORMATION
  Report Type: 
  Country: None (occurrence: None)
  Receive Date: 20120824
  Receipt Date: 20120815
  Transmission Date: 20120928
  Serious: Yes (Hospitalization, Other)
  Sender: FDA-Public Use
  Company Number: BW-ABBOTT-12P-019-0964557-00

PATIENT
  Age: 26 Year
  Sex: Female

DRUGS (2)
  1. LOPINAVIR/RITONAVIR [Suspect]
     Indication: HIV INFECTION
     Route: 048
     Dates: start: 20120315
  2. EMTRICITABINE/TENOFOVIR DISOPROXIL FUMARATE [Concomitant]
     Indication: HIV INFECTION
     Route: 048
     Dates: start: 20120315

REACTIONS (1)
  - ABORTION INCOMPLETE [None]
